FAERS Safety Report 5586043-3 (Version None)
Quarter: 2008Q1

REPORT INFORMATION
  Report Type: 
  Country: None (occurrence: None)
  Receive Date: 20080104
  Receipt Date: 20071221
  Transmission Date: 20080703
  Serious: Yes (Hospitalization)
  Sender: FDA-Public Use
  Company Number: 2007P1000741

PATIENT
  Age: 60 Year
  Sex: Male

DRUGS (3)
  1. BUSULFAN (BUSULFAN) [Suspect]
     Indication: STEM CELL TRANSPLANT
     Dosage: 29.08 ML; X1; IV
     Route: 042
     Dates: start: 20070603, end: 20070604
  2. FLUDARABINE PHOSPHATE [Concomitant]
  3. VALPROATE SODIUM [Concomitant]

REACTIONS (8)
  - ACUTE GRAFT VERSUS HOST DISEASE [None]
  - ANOREXIA [None]
  - APLASIA PURE RED CELL [None]
  - BLOOD CREATININE INCREASED [None]
  - CYTOMEGALOVIRUS ANTIGEN POSITIVE [None]
  - HYPERKALAEMIA [None]
  - NAUSEA [None]
  - STOMATITIS [None]
